FAERS Safety Report 5788694-X (Version None)
Quarter: 2008Q2

REPORT INFORMATION
  Report Type: 
  Country: None (occurrence: None)
  Receive Date: 20080626
  Receipt Date: 20080619
  Transmission Date: 20081010
  Serious: Yes (Hospitalization)
  Sender: FDA-Public Use
  Company Number: US-AMGEN-US288378

PATIENT
  Sex: Female

DRUGS (7)
  1. ENBREL [Suspect]
     Indication: RHEUMATOID ARTHRITIS
     Route: 058
     Dates: start: 20021029
  2. CELEBREX [Concomitant]
     Dates: start: 20020101, end: 20060306
  3. METHOTREXATE [Concomitant]
     Dates: start: 20020101, end: 20040923
  4. AMITRIPTYLINE HCL [Concomitant]
     Dates: start: 20020101, end: 20070709
  5. XANAX [Concomitant]
     Dates: start: 20030121
  6. ARAVA [Concomitant]
     Dates: start: 20020101
  7. PREDNISONE [Concomitant]
     Dates: start: 20020101

REACTIONS (1)
  - INTESTINAL OBSTRUCTION [None]
